FAERS Safety Report 17756430 (Version 1)
Quarter: 2020Q2

REPORT INFORMATION
  Report Type: Spontaneous
  Country: FR (occurrence: FR)
  Receive Date: 20200507
  Receipt Date: 20200507
  Transmission Date: 20200714
  Serious: Yes (Life-Threatening)
  Sender: FDA-Public Use
  Company Number: FR-CADILA HEALTHCARE LIMITED-FR-ZYDUS-022656

PATIENT

DRUGS (3)
  1. METFORMIN [Suspect]
     Active Substance: METFORMIN HYDROCHLORIDE
     Indication: INSULIN-REQUIRING TYPE 2 DIABETES MELLITUS
     Dosage: 3 DOSAGE FORM,(INTERVAL :1 DAYS)
     Route: 048
     Dates: start: 201712, end: 20180202
  2. COBICISTAT + ELVITEGRAVIR + EMTRICITABINE + TENOFO [Suspect]
     Active Substance: COBICISTAT\ELVITEGRAVIR\EMTRICITABINE\TENOFOVIR
     Indication: HIV INFECTION
     Dosage: 1 DOSAGE FORM,1 DF, UNK,(INTERVAL :1 DAYS)
     Route: 048
     Dates: start: 20180105, end: 20180202
  3. TENOFOVIR DISOPROXIL FUMARATE. [Suspect]
     Active Substance: TENOFOVIR DISOPROXIL FUMARATE
     Indication: HIV INFECTION
     Dosage: 1 DOSAGE FORM,1 DF, UNK
     Route: 048
     Dates: start: 20160223, end: 20180202

REACTIONS (2)
  - Lactic acidosis [Recovered/Resolved]
  - Renal tubular necrosis [Recovering/Resolving]

NARRATIVE: CASE EVENT DATE: 20180202
